FAERS Safety Report 10336928 (Version 8)
Quarter: 2014Q4

REPORT INFORMATION
  Report Type: Report from Study
  Country: JP (occurrence: JP)
  Receive Date: 20140723
  Receipt Date: 20141112
  Transmission Date: 20150528
  Serious: Yes (Death, Hospitalization)
  Sender: FDA-Public Use
  Company Number: JP-MERCK-1406JPN010776

PATIENT
  Age: 61 Year
  Sex: Male
  Weight: 70.2 kg

DRUGS (7)
  1. PEMBROLIZUMAB. [Suspect]
     Active Substance: PEMBROLIZUMAB
     Dosage: 10 MG/KG, DOSE: 140, UNITS NOT PROVIDED, DOSING INTERVAL 3 WEEKS
     Route: 042
     Dates: start: 20140612, end: 20140612
  2. WARFARIN [Concomitant]
     Active Substance: WARFARIN
     Indication: EMBOLISM
     Dosage: 4 MG, QD
     Route: 048
     Dates: start: 20140507, end: 20140611
  3. WARFARIN [Concomitant]
     Active Substance: WARFARIN
     Dosage: 3 MG, QD
     Route: 048
     Dates: start: 20140612, end: 20140617
  4. MAGLAX (MAGNESIUM OXIDE) [Concomitant]
     Active Substance: MAGNESIUM OXIDE
     Indication: CONSTIPATION
     Dosage: 330 MG, TID
     Route: 048
     Dates: start: 20140503, end: 20140707
  5. PEMBROLIZUMAB. [Suspect]
     Active Substance: PEMBROLIZUMAB
     Indication: NON-SMALL CELL LUNG CANCER
     Dosage: 10 MG/KG, DOSE: 140, UNITS NOT PROVIDED, DOSING INTERVAL 3 WEEKS
     Route: 042
     Dates: start: 20140522, end: 20140522
  6. CODEINE PHOSPHATE [Concomitant]
     Active Substance: CODEINE PHOSPHATE
     Indication: COUGH
     Dosage: 2 G, BID
     Route: 048
     Dates: start: 20140522, end: 20140625
  7. LOXONIN [Concomitant]
     Active Substance: LOXOPROFEN SODIUM
     Indication: BACK PAIN
     Dosage: TOTAL DAILY DOSE: 1 APPLICATION
     Route: 061
     Dates: start: 20140602, end: 20140619

REACTIONS (3)
  - Pneumonia aspiration [Not Recovered/Not Resolved]
  - Interstitial lung disease [Fatal]
  - Pneumonia aspiration [Not Recovered/Not Resolved]

NARRATIVE: CASE EVENT DATE: 20140618
